FAERS Safety Report 10595237 (Version 2)
Quarter: 2014Q4

REPORT INFORMATION
  Report Type: Spontaneous
  Country: US (occurrence: US)
  Receive Date: 20141120
  Receipt Date: 20141202
  Transmission Date: 20150529
  Serious: Yes (Death)
  Sender: FDA-Public Use
  Company Number: US-UNITED THERAPEUTICS-UNT-2014-011206

PATIENT
  Sex: Female
  Weight: 72.56 kg

DRUGS (1)
  1. REMODULIN [Suspect]
     Active Substance: TREPROSTINIL
     Indication: PULMONARY ARTERIAL HYPERTENSION
     Dosage: UNK
     Route: 058
     Dates: start: 20141017, end: 20141028

REACTIONS (3)
  - Renal failure [Fatal]
  - Respiratory failure [Fatal]
  - Pulmonary arterial hypertension [Fatal]

NARRATIVE: CASE EVENT DATE: 2014
